FAERS Safety Report 9769459 (Version 1)
Quarter: 2013Q4

REPORT INFORMATION
  Report Type: Spontaneous
  Country: DE (occurrence: DE)
  Receive Date: 20131218
  Receipt Date: 20131218
  Transmission Date: 20140711
  Serious: Yes (Other)
  Sender: FDA-Public Use
  Company Number: PHHY2013DE147998

PATIENT
  Sex: Male

DRUGS (6)
  1. RITALIN LA [Suspect]
     Dosage: 20 MG, UNK
     Route: 048
  2. L-THYROXIN [Concomitant]
  3. TEMODAL [Concomitant]
  4. MINIRIN//DESMOPRESSIN [Concomitant]
  5. CORTISONE [Concomitant]
  6. ROCEPHIN [Concomitant]

REACTIONS (4)
  - Neuroblastoma [Unknown]
  - Blindness [Unknown]
  - Metastasis [Unknown]
  - Weight increased [Unknown]
